FAERS Safety Report 19449713 (Version 2)
Quarter: 2021Q3

REPORT INFORMATION
  Report Type: Spontaneous
  Country: DE (occurrence: DE)
  Receive Date: 20210622
  Receipt Date: 20210719
  Transmission Date: 20211014
  Serious: Yes (Death, Hospitalization)
  Sender: FDA-Public Use
  Company Number: DE-PFIZER INC-2021661298

PATIENT
  Age: 42 Year
  Sex: Female

DRUGS (3)
  1. RITUXIMAB. [Suspect]
     Active Substance: RITUXIMAB
     Indication: GRANULOMATOSIS WITH POLYANGIITIS
     Dosage: 500 MG, EVERY 6 MONTHS
  2. PREDNISOLONE. [Suspect]
     Active Substance: PREDNISOLONE
     Indication: GRANULOMATOSIS WITH POLYANGIITIS
     Dosage: LOW DOSE
     Route: 065
  3. RITUXIMAB. [Suspect]
     Active Substance: RITUXIMAB
     Dosage: 650 MG

REACTIONS (9)
  - Myocarditis [Fatal]
  - Nausea [Unknown]
  - Myocardial necrosis [Fatal]
  - Atrioventricular block complete [Unknown]
  - Palpitations [Unknown]
  - Multiple organ dysfunction syndrome [Fatal]
  - Fatigue [Unknown]
  - Coagulopathy [Unknown]
  - Cardiogenic shock [Unknown]
